FAERS Safety Report 7492502-9 (Version None)
Quarter: 2011Q2

REPORT INFORMATION
  Report Type: 
  Country: None (occurrence: None)
  Receive Date: 20110519
  Receipt Date: 20110512
  Transmission Date: 20111010
  Serious: Yes (Other)
  Sender: FDA-Public Use
  Company Number: US-PFIZER INC-2011102520

PATIENT
  Sex: Female

DRUGS (6)
  1. PREMARIN [Suspect]
     Dosage: 0.625 MG, 1X/DAY
     Route: 048
  2. HUMULIN 70/30 [Concomitant]
     Dosage: 70-30 UNITS/ML, 14 UNITS IN THE AM, 10 UNITS IN THE PM, SQ
  3. HYZAAR [Concomitant]
     Dosage: 12.5 MG-50MG, 1X/DAY
     Route: 048
  4. ELAVIL [Concomitant]
     Dosage: 50 MG, 1X/DAY, AT BEDTIME
     Route: 048
  5. CELEXA [Concomitant]
     Dosage: 20 MG, 1X/DAY
     Route: 048
  6. PROTONIX [Suspect]
     Dosage: 40 MG, 1X/DAY
     Route: 048

REACTIONS (1)
  - DIABETES MELLITUS INADEQUATE CONTROL [None]
